FAERS Safety Report 4411741-4 (Version None)
Quarter: 2004Q3

REPORT INFORMATION
  Report Type: 
  Country: None (occurrence: None)
  Receive Date: 20040729
  Receipt Date: 20040729
  Transmission Date: 20050211
  Serious: Yes (Other)
  Sender: FDA-Public Use
  Company Number: None

PATIENT
  Sex: Female
  Weight: 99.7913 kg

DRUGS (1)
  1. ZICAM [Suspect]
     Dosage: SPRAY TWICE DAIL NASAL
     Route: 045

REACTIONS (1)
  - ANOSMIA [None]
